FAERS Safety Report 8829354 (Version 1)
Quarter: 2012Q4

REPORT INFORMATION
  Report Type: 
  Country: GB (occurrence: GB)
  Receive Date: 20121008
  Receipt Date: 20121008
  Transmission Date: 20130627
  Serious: Yes (Other)
  Sender: FDA-Public Use
  Company Number: GB-VERTEX PHARMACEUTICAL INC.-2012-022526

PATIENT
  Age: 61 Year
  Sex: Male

DRUGS (20)
  1. INCIVO [Suspect]
     Indication: HEPATITIS C
     Dosage: Dosage Form: Tablet
     Route: 048
  2. RIBAVIRIN [Concomitant]
     Indication: HEPATITIS C
     Dosage: Dosage Form: Unspecified
     Route: 065
  3. PEG INTERFERON [Concomitant]
     Indication: HEPATITIS C
     Dosage: Dosage Form: Unspecified
     Route: 065
  4. GABAPENTIN [Concomitant]
     Dosage: Dosage Form: Unspecified
     Route: 065
  5. GABAPENTIN [Concomitant]
     Dosage: at bedtime
     Route: 065
  6. AMITRIPTYLINE [Concomitant]
     Dosage: at bedtime
     Route: 065
  7. ASPIRIN [Concomitant]
     Dosage: Dosage Form: Unspecified
     Route: 065
  8. BISOPROLOL [Concomitant]
     Dosage: Dosage Form: Unspecified
     Route: 065
  9. FOLIC ACID [Concomitant]
     Dosage: Dosage Form: Unspecified
     Route: 065
  10. OMEPRAZOLE [Concomitant]
     Dosage: Dosage Form: Unspecified
     Route: 065
  11. QUININE SULPHATE [Concomitant]
     Dosage: at bedtime
     Route: 065
  12. RAMIPRIL [Concomitant]
     Dosage: Dosage Form: Unspecified
     Route: 065
  13. SALBUTAMOL [Concomitant]
     Dosage: Dosage Form: Unspecified
     Route: 055
  14. TIOTROPIUM [Concomitant]
     Dosage: Dosage Form: Unspecified
     Route: 055
  15. ADCAL [Concomitant]
     Dosage: Dosage Form: Tablet
     Route: 048
  16. PREDNISOLONE [Concomitant]
     Dosage: Dosage Form: Unspecified
     Route: 065
  17. BUPRENORPHINE [Concomitant]
     Dosage: every 4 days
     Route: 062
  18. BUPRENORPHINE [Concomitant]
     Dosage: Dosage Form: Unspecified
     Route: 065
  19. BUPRENORPHINE [Concomitant]
     Dosage: 400 UNK, qid
  20. FLUCLOXACILLIN [Concomitant]
     Dosage: Dosage Form: Unspecified
     Route: 065

REACTIONS (1)
  - Cellulitis [Unknown]
